FAERS Safety Report 10058477 (Version 1)
Quarter: 2014Q2

REPORT INFORMATION
  Report Type: Report from Study
  Country: JP (occurrence: JP)
  Receive Date: 20140404
  Receipt Date: 20140404
  Transmission Date: 20141212
  Serious: Yes (Death)
  Sender: FDA-Public Use
  Company Number: JP-ELI_LILLY_AND_COMPANY-JP201404000002

PATIENT
  Age: 43 Year
  Sex: Male
  Weight: 68.2 kg

DRUGS (5)
  1. GEMCITABINE HYDROCHLORIDE [Suspect]
     Indication: PANCREATIC CARCINOMA STAGE IV
     Dosage: 1770 MG, UNK, ON DAY 1, 8 AND 15 OF 28-DAY CYCLE
     Route: 042
     Dates: start: 20120530, end: 20120816
  2. TRAMETINIB [Suspect]
     Indication: PANCREATIC CARCINOMA STAGE IV
     Dosage: 2 MG, QD
     Route: 048
     Dates: start: 20120530, end: 20120823
  3. LOXOPROFEN SODIUM [Concomitant]
     Indication: CANCER PAIN
     Dosage: 60 MG, TID
     Route: 048
     Dates: start: 20120528, end: 20120826
  4. PARIET [Concomitant]
     Indication: PROPHYLAXIS AGAINST GASTROINTESTINAL ULCER
     Dosage: 10 MG, QD
     Route: 048
     Dates: start: 20120528, end: 20120826
  5. OXYCONTIN [Concomitant]
     Indication: CANCER PAIN
     Dosage: 10 MG, BID
     Route: 048
     Dates: start: 20120528, end: 20120826

REACTIONS (2)
  - Respiratory failure [Fatal]
  - Interstitial lung disease [Fatal]
